FAERS Safety Report 9785398 (Version 1)
Quarter: 2013Q4

REPORT INFORMATION
  Report Type: Spontaneous
  Country: US (occurrence: None)
  Receive Date: 20131226
  Receipt Date: 20131226
  Transmission Date: 20140711
  Serious: Yes (Other)
  Sender: FDA-Public Use
  Company Number: None

PATIENT
  Age: 85 Year
  Sex: Female
  Weight: 55.79 kg

DRUGS (14)
  1. VICODIN (GENERIC) ? ? THREW BOTTLE AWAY [Suspect]
     Indication: EXOSTOSIS
     Dosage: 8 PILLS?MOUTH
     Route: 048
     Dates: start: 20131206, end: 20131209
  2. VICODIN (GENERIC) ? ? THREW BOTTLE AWAY [Suspect]
     Indication: TOE OPERATION
     Dosage: 8 PILLS?MOUTH
     Route: 048
     Dates: start: 20131206, end: 20131209
  3. VICODIN (GENERIC) ? ? THREW BOTTLE AWAY [Suspect]
     Indication: PAIN
     Dosage: 8 PILLS?MOUTH
     Route: 048
     Dates: start: 20131206, end: 20131209
  4. CLARITIN [Concomitant]
  5. LEVOTHYROZINE [Concomitant]
  6. LISINOPRIL [Concomitant]
  7. VERAPAMIL [Concomitant]
  8. PRESU VISION [Concomitant]
  9. LUTEIN [Concomitant]
  10. RANITIDINE [Concomitant]
  11. RANITIDINE [Concomitant]
  12. VITAMIN B12 [Concomitant]
  13. B-6 [Concomitant]
  14. CALCIUM [Concomitant]

REACTIONS (1)
  - Rash [None]
